FAERS Safety Report 9025382 (Version 1)
Quarter: 2013Q1

REPORT INFORMATION
  Report Type: Spontaneous
  Country: NL (occurrence: NL)
  Receive Date: 20130122
  Receipt Date: 20130122
  Transmission Date: 20140127
  Serious: Yes (Other)
  Sender: FDA-Public Use
  Company Number: NL-WATSON-2013-00648

PATIENT
  Sex: Male

DRUGS (1)
  1. TEMAZEPAM [Suspect]
     Indication: INSOMNIA
     Dosage: 10 MG, UNKNOWN
     Route: 065

REACTIONS (3)
  - Anxiety [Recovered/Resolved]
  - Restlessness [Recovered/Resolved]
  - Abnormal dreams [Recovered/Resolved]
